FAERS Safety Report 8304320-X (Version None)
Quarter: 2012Q2

REPORT INFORMATION
  Report Type: 
  Country: None (occurrence: None)
  Receive Date: 20120423
  Receipt Date: 20120423
  Transmission Date: 20120825
  Serious: Yes (Hospitalization)
  Sender: FDA-Public Use
  Company Number: None

PATIENT
  Age: 37 Year
  Sex: Female
  Weight: 63.5 kg

DRUGS (3)
  1. SODIUM CHLORIDE [Concomitant]
  2. IRON SUCROSE [Suspect]
     Indication: HAEMOGLOBIN DECREASED
  3. IRON SUCROSE [Suspect]
     Indication: HAEMATOCHEZIA

REACTIONS (2)
  - BACK PAIN [None]
  - DYSPNOEA [None]
